FAERS Safety Report 5871233-2 (Version None)
Quarter: 2008Q3

REPORT INFORMATION
  Report Type: 
  Country: None (occurrence: None)
  Receive Date: 20080902
  Receipt Date: 20080819
  Transmission Date: 20090109
  Serious: Yes (Other)
  Sender: FDA-Public Use
  Company Number: 2008-03081

PATIENT
  Sex: 0

DRUGS (2)
  1. VELCADE [Suspect]
     Indication: MULTIPLE MYELOMA
  2. DEXAMETHASONE TAB [Suspect]
     Indication: MULTIPLE MYELOMA
     Dosage: 30 MG

REACTIONS (10)
  - DIARRHOEA [None]
  - FACE OEDEMA [None]
  - FATIGUE [None]
  - HERPES ZOSTER [None]
  - NAUSEA [None]
  - NEUROTOXICITY [None]
  - OEDEMA PERIPHERAL [None]
  - PLEURAL EFFUSION [None]
  - PNEUMONIA FUNGAL [None]
  - THROMBOCYTOPENIA [None]
